FAERS Safety Report 9871472 (Version 1)
Quarter: 2014Q1

REPORT INFORMATION
  Report Type: Spontaneous
  Country: US (occurrence: None)
  Receive Date: 20140204
  Receipt Date: 20140204
  Transmission Date: 20141002
  Serious: Yes (Hospitalization)
  Sender: FDA-Public Use
  Company Number: None

PATIENT
  Age: 21 Year
  Sex: Female
  Weight: 61.24 kg

DRUGS (2)
  1. IMPLANON [Suspect]
     Dates: start: 201108, end: 201309
  2. ALEVE [Concomitant]

REACTIONS (14)
  - Pain in extremity [None]
  - Hypoaesthesia [None]
  - Headache [None]
  - Dizziness [None]
  - Implant site pain [None]
  - Chest pain [None]
  - Breast pain [None]
  - Psychogenic seizure [None]
  - Musculoskeletal pain [None]
  - Muscle fatigue [None]
  - Muscle spasms [None]
  - Pain in extremity [None]
  - Hypoaesthesia [None]
  - Drug ineffective [None]
